FAERS Safety Report 8015052-X (Version None)
Quarter: 2011Q4

REPORT INFORMATION
  Report Type: 
  Country: None (occurrence: None)
  Receive Date: 20111230
  Receipt Date: 20111220
  Transmission Date: 20120403
  Serious: Yes (Hospitalization)
  Sender: FDA-Public Use
  Company Number: US-BIOGENIDEC-2011BI045995

PATIENT
  Age: 57 Year
  Sex: Male

DRUGS (3)
  1. TYSABRI [Suspect]
     Indication: MULTIPLE SCLEROSIS
     Route: 042
     Dates: start: 20100826, end: 20110909
  2. AVONEX [Concomitant]
     Indication: MULTIPLE SCLEROSIS
     Route: 030
  3. GILENYA [Concomitant]
     Indication: MULTIPLE SCLEROSIS

REACTIONS (2)
  - DRUG SPECIFIC ANTIBODY PRESENT [None]
  - PNEUMONIA [None]
